FAERS Safety Report 17945311 (Version 1)
Quarter: 2020Q2

REPORT INFORMATION
  Report Type: Spontaneous
  Country: US (occurrence: US)
  Receive Date: 20200625
  Receipt Date: 20200625
  Transmission Date: 20200714
  Serious: Yes (Other)
  Sender: FDA-Public Use
  Company Number: US-ASTRAZENECA-2018SF22691

PATIENT
  Age: 24635 Day
  Sex: Female

DRUGS (44)
  1. SYNTHROID [Concomitant]
     Active Substance: LEVOTHYROXINE SODIUM
  2. ACTOS [Concomitant]
     Active Substance: PIOGLITAZONE HYDROCHLORIDE
  3. FEXOFENADINE [Concomitant]
     Active Substance: FEXOFENADINE HYDROCHLORIDE
  4. NEXIUM [Suspect]
     Active Substance: ESOMEPRAZOLE MAGNESIUM
     Route: 048
     Dates: start: 20040301
  5. TOPAMAX [Concomitant]
     Active Substance: TOPIRAMATE
  6. BIAXIN [Concomitant]
     Active Substance: CLARITHROMYCIN
  7. GEMFIBROZIL. [Concomitant]
     Active Substance: GEMFIBROZIL
  8. ISOSORB MONO [Concomitant]
     Active Substance: ISOSORBIDE MONONITRATE
  9. ERTACZO [Concomitant]
     Active Substance: SERTACONAZOLE NITRATE
  10. CIPROFLOXACIN. [Concomitant]
     Active Substance: CIPROFLOXACIN
  11. NEXIUM [Suspect]
     Active Substance: ESOMEPRAZOLE MAGNESIUM
     Route: 048
     Dates: start: 20110809
  12. NEXIUM [Suspect]
     Active Substance: ESOMEPRAZOLE MAGNESIUM
     Route: 048
     Dates: start: 20090630
  13. PROTONIX [Suspect]
     Active Substance: PANTOPRAZOLE SODIUM
     Route: 065
     Dates: start: 2003, end: 2012
  14. PROTONIX [Suspect]
     Active Substance: PANTOPRAZOLE SODIUM
     Route: 048
     Dates: start: 20041123
  15. HYDROXYZINE [Concomitant]
     Active Substance: HYDROXYZINE HYDROCHLORIDE
  16. ALBUTEROL. [Concomitant]
     Active Substance: ALBUTEROL
  17. HYDROCODONE-ACETAMINOPHEN [Concomitant]
     Active Substance: ACETAMINOPHEN\HYDROCODONE
  18. AZITHROMYCIN ANHYDROUS. [Concomitant]
     Active Substance: AZITHROMYCIN ANHYDROUS
  19. NEXIUM [Suspect]
     Active Substance: ESOMEPRAZOLE MAGNESIUM
     Route: 048
     Dates: start: 20080906
  20. FOLTX [Concomitant]
     Active Substance: CYANOCOBALAMIN CO-57\FOLIC ACID\PYRIDOXINE HYDROCHLORIDE
  21. TOPROL XL [Concomitant]
     Active Substance: METOPROLOL SUCCINATE
  22. RANITIDINE. [Concomitant]
     Active Substance: RANITIDINE
  23. NEXIUM [Suspect]
     Active Substance: ESOMEPRAZOLE MAGNESIUM
     Route: 048
     Dates: start: 20031128
  24. LEVOTHROID [Concomitant]
     Active Substance: LEVOTHYROXINE SODIUM
  25. CARVEDILOL. [Concomitant]
     Active Substance: CARVEDILOL
  26. FLUOXETINE [Concomitant]
     Active Substance: FLUOXETINE HYDROCHLORIDE
  27. MINITRAN [Concomitant]
     Active Substance: NITROGLYCERIN
  28. NYSTATIN. [Concomitant]
     Active Substance: NYSTATIN
  29. TORSEMIDE. [Concomitant]
     Active Substance: TORSEMIDE
  30. COREG [Concomitant]
     Active Substance: CARVEDILOL
  31. ZETIA [Concomitant]
     Active Substance: EZETIMIBE
  32. ADVAIR HFA [Concomitant]
     Active Substance: FLUTICASONE PROPIONATE\SALMETEROL XINAFOATE
  33. NEXIUM [Suspect]
     Active Substance: ESOMEPRAZOLE MAGNESIUM
     Route: 048
     Dates: start: 2003, end: 2012
  34. CYCLOBENZAPRINE. [Concomitant]
     Active Substance: CYCLOBENZAPRINE
  35. MECLIZINE [Concomitant]
     Active Substance: MECLIZINE HYDROCHLORIDE
  36. LIPITOR [Concomitant]
     Active Substance: ATORVASTATIN CALCIUM
  37. DURADRIN [Concomitant]
     Active Substance: ACETAMINOPHEN\DICHLORALPHENAZONE\ISOMETHEPTENE MUCATE
  38. KLOR-CON [Concomitant]
     Active Substance: POTASSIUM CHLORIDE
  39. ALLEGRA [Concomitant]
     Active Substance: FEXOFENADINE HYDROCHLORIDE
  40. ASTELIN [Concomitant]
     Active Substance: AZELASTINE HYDROCHLORIDE
  41. PROTONIX [Suspect]
     Active Substance: PANTOPRAZOLE SODIUM
     Route: 048
     Dates: start: 20030606
  42. SINGULAIR [Concomitant]
     Active Substance: MONTELUKAST SODIUM
  43. TRICOR [Concomitant]
     Active Substance: FENOFIBRATE
  44. RHINOCORT [Concomitant]
     Active Substance: BUDESONIDE

REACTIONS (2)
  - Renal failure [Unknown]
  - Chronic kidney disease [Unknown]

NARRATIVE: CASE EVENT DATE: 20110909
